FAERS Safety Report 12033331 (Version 1)
Quarter: 2016Q1

REPORT INFORMATION
  Report Type: Report from Study
  Country: US (occurrence: US)
  Receive Date: 20160207
  Receipt Date: 20160207
  Transmission Date: 20160526
  Serious: No
  Sender: FDA-Public Use
  Company Number: US-ABBVIE-15K-163-1513500-00

PATIENT
  Age: 47 Year
  Sex: Female

DRUGS (2)
  1. HUMIRA [Suspect]
     Active Substance: ADALIMUMAB
     Route: 058
     Dates: start: 20151128, end: 20151128
  2. HUMIRA [Suspect]
     Active Substance: ADALIMUMAB
     Indication: CROHN^S DISEASE
     Route: 058
     Dates: start: 20151114, end: 20151114

REACTIONS (7)
  - Constipation [Unknown]
  - Weight decreased [Unknown]
  - Insomnia [Unknown]
  - Abdominal pain upper [Unknown]
  - Fungal infection [Unknown]
  - Depressed mood [Unknown]
  - Decreased appetite [Unknown]

NARRATIVE: CASE EVENT DATE: 201511
